FAERS Safety Report 9241797 (Version 2)
Quarter: 2013Q2

REPORT INFORMATION
  Report Type: Not Available
  Country: FR (occurrence: FR)
  Receive Date: 20130419
  Receipt Date: 20130521
  Transmission Date: 20140414
  Serious: Yes (Death, Hospitalization)
  Sender: FDA-Public Use
  Company Number: FR-NAPPMUNDI-GBR-2013-0013694

PATIENT
  Age: 95 Year
  Sex: Female

DRUGS (16)
  1. OXYCONTIN LP, COMPRIME PELLICULE A LIBERATION PROLONGEE [Suspect]
     Indication: PAIN
     Dosage: HALF DOSE
     Route: 048
  2. OXYCONTIN LP, COMPRIME PELLICULE A LIBERATION PROLONGEE [Suspect]
     Dosage: 20 MG, BID
     Route: 048
     Dates: start: 20130115
  3. OXYCONTIN LP, COMPRIME PELLICULE A LIBERATION PROLONGEE [Suspect]
     Dosage: 15 MG, BID
     Route: 048
     Dates: start: 20130111
  4. OXYCONTIN LP, COMPRIME PELLICULE A LIBERATION PROLONGEE [Suspect]
     Dosage: 10 MG, BID
     Route: 048
     Dates: start: 20130109, end: 20130111
  5. MIDAZOLAM DAKOTA [Suspect]
     Indication: PRODUCT USED FOR UNKNOWN INDICATION
     Dosage: 2 MG, DAILY
     Route: 042
     Dates: start: 20130119
  6. MIDAZOLAM DAKOTA [Suspect]
     Dosage: 1 MG, DAILY
     Route: 042
     Dates: start: 20130118
  7. MIDAZOLAM DAKOTA [Suspect]
     Dosage: 5 MG/ML 1/2 TID
     Route: 048
     Dates: start: 20130104, end: 20130119
  8. SCOPOLAMINE /00008701/ [Suspect]
     Dosage: .5 DF, BID
     Dates: start: 20130118, end: 20130123
  9. OXYNORM SOLUTION INJECTABLE [Concomitant]
     Indication: ESCHAR
     Dosage: 2.5 MG, QID
     Route: 058
     Dates: start: 20121226, end: 20130109
  10. OXYNORM SOLUTION INJECTABLE [Concomitant]
     Dosage: 5 MG, QID
     Route: 058
     Dates: start: 20121221, end: 20121226
  11. ASPEGIC                            /00002703/ [Concomitant]
     Indication: CEREBROVASCULAR ACCIDENT
     Dosage: 100 MG, DAILY
     Dates: start: 20121206
  12. ATHYMIL [Concomitant]
     Dosage: UNK
     Dates: start: 20121224
  13. MOTILIUM                           /00498201/ [Concomitant]
     Indication: NAUSEA
     Dosage: UNK
     Dates: end: 20130107
  14. PRIMPERAN [Concomitant]
     Dosage: UNK, TID
     Dates: start: 20130117
  15. PRIMPERAN [Concomitant]
     Dosage: 5 ML, TID
     Route: 048
     Dates: start: 20130107, end: 20130115
  16. ZOPHREN                            /00955301/ [Concomitant]

REACTIONS (1)
  - Coma [Recovering/Resolving]
